FAERS Safety Report 5848058-7 (Version None)
Quarter: 2008Q3

REPORT INFORMATION
  Report Type: 
  Country: None (occurrence: None)
  Receive Date: 20080814
  Receipt Date: 20080806
  Transmission Date: 20090109
  Serious: Yes (Hospitalization, Other)
  Sender: FDA-Public Use
  Company Number: FR-1166393

PATIENT
  Age: 44 Year
  Sex: Female

DRUGS (4)
  1. TRAVATAN [Suspect]
     Indication: OCULAR HYPERTENSION
     Dosage: 1 GTT QD, OPHTHALMIC
     Route: 047
     Dates: start: 20080423, end: 20080424
  2. CRESTOR [Concomitant]
  3. OROCAL(CALCIUM CARBONATE) [Concomitant]
  4. FOSAMAX [Concomitant]

REACTIONS (2)
  - MONOPLEGIA [None]
  - TRANSIENT ISCHAEMIC ATTACK [None]
